FAERS Safety Report 10184592 (Version 1)
Quarter: 2014Q2

REPORT INFORMATION
  Report Type: Report from Study
  Country: CA (occurrence: CA)
  Receive Date: 20140521
  Receipt Date: 20140521
  Transmission Date: 20141212
  Serious: Yes (Hospitalization)
  Sender: FDA-Public Use
  Company Number: CA-BRISTOL-MYERS SQUIBB COMPANY-20765889

PATIENT
  Age: 69 Year
  Sex: Female

DRUGS (3)
  1. ORENCIA [Suspect]
     Indication: RHEUMATOID ARTHRITIS
     Dosage: 1 DF = 750 UNIT NOS
     Dates: start: 20120621
  2. PREDNISONE [Suspect]
  3. SULFASALAZINE [Concomitant]

REACTIONS (2)
  - Influenza [Recovering/Resolving]
  - Inflammation [Recovering/Resolving]
